FAERS Safety Report 10084232 (Version 3)
Quarter: 2014Q2

REPORT INFORMATION
  Report Type: Spontaneous
  Country: US (occurrence: None)
  Receive Date: 20140415
  Receipt Date: 20140513
  Transmission Date: 20141212
  Serious: Yes (Other)
  Sender: FDA-Public Use
  Company Number: 2014-US-004012

PATIENT
  Age: 46 Year
  Sex: Female

DRUGS (4)
  1. XYREM [Suspect]
     Indication: NARCOLEPSY
     Route: 048
     Dates: start: 200607, end: 2006
  2. METHADONE HCL [Concomitant]
  3. KLONOPIN (CLONAZEPAM) (TABLETS) [Concomitant]
  4. TOPAMAX [Concomitant]

REACTIONS (7)
  - Spinal operation [None]
  - Hallucination [None]
  - Cataplexy [None]
  - Spinal pain [None]
  - Narcolepsy [None]
  - Condition aggravated [None]
  - Screaming [None]
